FAERS Safety Report 20764041 (Version 4)
Quarter: 2022Q4

REPORT INFORMATION
  Report Type: Report from Study
  Country: IE (occurrence: IE)
  Receive Date: 20220428
  Receipt Date: 20221220
  Transmission Date: 20230113
  Serious: Yes (Other)
  Sender: FDA-Public Use
  Company Number: IE-JNJFOC-20220410344

PATIENT
  Age: 64 Year
  Sex: Male

DRUGS (7)
  1. STELARA [Suspect]
     Active Substance: USTEKINUMAB
     Indication: Fibromyalgia
     Route: 058
     Dates: start: 20160321
  2. STELARA [Suspect]
     Active Substance: USTEKINUMAB
     Route: 058
  3. TAMSULOSIN [Concomitant]
     Active Substance: TAMSULOSIN
  4. CALCIUM CARBONATE [Concomitant]
     Active Substance: CALCIUM CARBONATE
  5. PREDNISOLONE [Concomitant]
     Active Substance: PREDNISOLONE
  6. PANTOPRAZOLE [Concomitant]
     Active Substance: PANTOPRAZOLE
  7. ALENDRONATE SODIUM [Concomitant]
     Active Substance: ALENDRONATE SODIUM

REACTIONS (5)
  - Coronary artery bypass [Unknown]
  - Aneurysm [Unknown]
  - Product dose omission issue [Unknown]
  - Off label use [Unknown]
  - Product use in unapproved indication [Unknown]
